FAERS Safety Report 15852540 (Version 2)
Quarter: 2019Q2

REPORT INFORMATION
  Report Type: Report from Study
  Country: JP (occurrence: JP)
  Receive Date: 20190122
  Receipt Date: 20190405
  Transmission Date: 20190711
  Serious: Yes (Death, Hospitalization)
  Sender: FDA-Public Use
  Company Number: JP-ACTELION-A-CH2018-167673

PATIENT
  Age: 70 Year
  Sex: Female

DRUGS (12)
  1. OPSUMIT [Suspect]
     Active Substance: MACITENTAN
     Indication: PULMONARY ARTERIAL HYPERTENSION
     Dosage: 10 MG, QD
     Route: 048
     Dates: start: 20170412, end: 20180223
  2. REVATIO [Concomitant]
     Active Substance: SILDENAFIL CITRATE
  3. ADCIRCA [Concomitant]
     Active Substance: TADALAFIL
  4. OXYGEN. [Concomitant]
     Active Substance: OXYGEN
  5. PROCYLIN [Concomitant]
     Active Substance: BERAPROST SODIUM
  6. BONOTEO [Concomitant]
     Active Substance: MINODRONIC ACID
  7. LASIX [Concomitant]
     Active Substance: FUROSEMIDE
  8. ALFAROL [Concomitant]
     Active Substance: ALFACALCIDOL
  9. WARFARIN [Concomitant]
     Active Substance: WARFARIN
  10. ZYLORIC [Concomitant]
     Active Substance: ALLOPURINOL
  11. UPTRAVI [Suspect]
     Active Substance: SELEXIPAG
     Indication: PULMONARY ARTERIAL HYPERTENSION
     Dosage: 0.2 MG, BID
     Route: 048
     Dates: start: 20170421, end: 20170615
  12. NEXIUM [Concomitant]
     Active Substance: ESOMEPRAZOLE MAGNESIUM

REACTIONS (11)
  - Breast cancer [Fatal]
  - Biopsy [Unknown]
  - Anaemia [Not Recovered/Not Resolved]
  - Hepatic neoplasm [Fatal]
  - Gamma-glutamyltransferase increased [Fatal]
  - Hyperkalaemia [Fatal]
  - Alanine aminotransferase increased [Fatal]
  - Dyspnoea [Fatal]
  - Respiratory arrest [Fatal]
  - Blood alkaline phosphatase increased [Fatal]
  - Aspartate aminotransferase increased [Fatal]

NARRATIVE: CASE EVENT DATE: 20170425
